FAERS Safety Report 13648495 (Version 1)
Quarter: 2020Q3

REPORT INFORMATION
  Report Type: Report from Study
  Country: US (occurrence: US)
  Receive Date: 20170613
  Receipt Date: 20170613
  Transmission Date: 20201105
  Serious: Yes (Hospitalization)
  Sender: FDA-Public Use
  Company Number: US-PFIZER INC-2017252089

PATIENT
  Age: 70 Year
  Sex: Female
  Weight: 66.32 kg

DRUGS (2)
  1. PANTOPRAZOLE [Suspect]
     Active Substance: PANTOPRAZOLE
     Dosage: UNK
     Dates: end: 20170418
  2. TASELISIB. [Suspect]
     Active Substance: TASELISIB
     Dosage: 4 MG, CYCLIC: 28 DAYS, QD
     Route: 048
     Dates: start: 20170228, end: 20170414

REACTIONS (10)
  - Hyponatraemia [Recovered/Resolved]
  - Blood bilirubin increased [Unknown]
  - Hypoalbuminaemia [Unknown]
  - Platelet count decreased [Unknown]
  - Aspartate aminotransferase increased [Unknown]
  - Cystitis [Unknown]
  - Alanine aminotransferase increased [Unknown]
  - Rash maculo-papular [Unknown]
  - White blood cell count decreased [Unknown]
  - Blood alkaline phosphatase increased [Unknown]

NARRATIVE: CASE EVENT DATE: 20170413
